FAERS Safety Report 13379731 (Version 2)
Quarter: 2017Q3

REPORT INFORMATION
  Report Type: Report from Study
  Country: ES (occurrence: ES)
  Receive Date: 20170328
  Receipt Date: 20170703
  Transmission Date: 20171127
  Serious: Yes (Death, Hospitalization)
  Sender: FDA-Public Use
  Company Number: ES-TAKEDA-2017MPI002243

PATIENT
  Age: 59 Year
  Sex: Female
  Weight: 38 kg

DRUGS (5)
  1. MELPHALAN. [Suspect]
     Active Substance: MELPHALAN
     Indication: PLASMA CELL MYELOMA
     Dosage: 190 MG, UNK
     Route: 065
     Dates: start: 20160731
  2. VELCADE [Suspect]
     Active Substance: BORTEZOMIB
     Indication: PLASMA CELL MYELOMA
     Dosage: 1.72 MG, UNK
     Route: 058
     Dates: start: 20150831, end: 20170307
  3. REVLIMID [Suspect]
     Active Substance: LENALIDOMIDE
     Indication: PLASMA CELL MYELOMA
     Dosage: 25 MG, UNK
     Route: 048
     Dates: start: 20150831, end: 20170307
  4. BUSILVEX [Suspect]
     Active Substance: BUSULFAN
     Indication: PLASMA CELL MYELOMA
     Dosage: 420 MG, UNK
     Route: 065
     Dates: start: 20160728
  5. DEXAMETHASONE. [Suspect]
     Active Substance: DEXAMETHASONE
     Indication: PLASMA CELL MYELOMA
     Dosage: 40 MG, UNK
     Route: 048
     Dates: start: 20150831, end: 20170307

REACTIONS (1)
  - Respiratory tract infection [Fatal]

NARRATIVE: CASE EVENT DATE: 20170307
